FAERS Safety Report 18448173 (Version 1)
Quarter: 2020Q4

REPORT INFORMATION
  Report Type: Spontaneous
  Country: ES (occurrence: ES)
  Receive Date: 20201030
  Receipt Date: 20201030
  Transmission Date: 20210114
  Serious: Yes (Other)
  Sender: FDA-Public Use
  Company Number: NVSC2020ES289523

PATIENT
  Age: 41 Year
  Sex: Female

DRUGS (1)
  1. DEFEROXAMINE [Suspect]
     Active Substance: DEFEROXAMINE MESYLATE
     Indication: PRODUCT USED FOR UNKNOWN INDICATION
     Dosage: 18 MG/KG (AFTER EVERY HEMODIALYSIS SESSION)
     Route: 042

REACTIONS (2)
  - Neurotoxicity [Unknown]
  - Deafness neurosensory [Recovered/Resolved]
